FAERS Safety Report 5333941-1 (Version None)
Quarter: 2007Q2

REPORT INFORMATION
  Report Type: 
  Country: None (occurrence: None)
  Receive Date: 20070524
  Receipt Date: 20070515
  Transmission Date: 20071010
  Serious: Yes (Other)
  Sender: FDA-Public Use
  Company Number: US-PFIZER INC-2007001106

PATIENT
  Sex: Male
  Weight: 74.8 kg

DRUGS (7)
  1. CHANTIX [Suspect]
     Indication: SMOKING CESSATION THERAPY
     Route: 048
     Dates: start: 20061101, end: 20070101
  2. ZITHROMAX [Suspect]
     Indication: PNEUMONIA
  3. PREVACID [Concomitant]
  4. GLUCOSAMINE [Concomitant]
  5. VITAMIN E [Concomitant]
  6. CALCIUM CHLORIDE [Concomitant]
  7. ALL OTHER THERAPEUTIC PRODUCTS [Concomitant]

REACTIONS (2)
  - NIGHTMARE [None]
  - PNEUMONIA [None]
